FAERS Safety Report 6877788-3 (Version None)
Quarter: 2010Q3

REPORT INFORMATION
  Report Type: 
  Country: None (occurrence: None)
  Receive Date: 20100727
  Receipt Date: 20091110
  Transmission Date: 20110219
  Serious: No
  Sender: FDA-Public Use
  Company Number: US-ABBOTT-09P-163-0608634-00

PATIENT
  Sex: Female
  Weight: 8.989 kg

DRUGS (1)
  1. SYNTHROID [Suspect]
     Indication: CONGENITAL ANOMALY
     Dosage: 1/2 A TABLET CRUSHED UP PER DAY
     Dates: start: 20090301

REACTIONS (2)
  - DRUG PRESCRIBING ERROR [None]
  - THYROID FUNCTION TEST ABNORMAL [None]
